FAERS Safety Report 24302654 (Version 3)
Quarter: 2024Q4

REPORT INFORMATION
  Report Type: Spontaneous
  Country: US (occurrence: US)
  Receive Date: 20240910
  Receipt Date: 20241129
  Transmission Date: 20250114
  Serious: No
  Sender: PFIZER
  Company Number: US-PFIZER INC-PV202400073949

PATIENT
  Age: 15 Year
  Sex: Male

DRUGS (2)
  1. GENOTROPIN [Suspect]
     Active Substance: SOMATROPIN
     Indication: Short stature
     Dosage: ALTERNATE 1.6 MG AND 1.8 MG EVERY OTHER NIGHT TO ACHIEVE ORDERED DOSE OF 1.7 MG
  2. GENOTROPIN [Suspect]
     Active Substance: SOMATROPIN
     Indication: Chronic kidney disease
     Dosage: ALTERNATE 1.6 MG AND 1.8 MG EVERY OTHER NIGHT TO ACHIEVE ORDERED DOSE OF 1.7 MG

REACTIONS (2)
  - Device breakage [Unknown]
  - Device material issue [Unknown]
